FAERS Safety Report 19767914 (Version 1)
Quarter: 2021Q3

REPORT INFORMATION
  Report Type: Spontaneous
  Country: RU (occurrence: RU)
  Receive Date: 20210831
  Receipt Date: 20210831
  Transmission Date: 20211014
  Serious: Yes (Other)
  Sender: FDA-Public Use
  Company Number: RU-ROCHE-2899994

PATIENT
  Age: 46 Year
  Sex: Female

DRUGS (2)
  1. VEMURAFENIB. [Suspect]
     Active Substance: VEMURAFENIB
     Indication: PRODUCT USED FOR UNKNOWN INDICATION
     Route: 065
  2. COBIMETINIB. [Suspect]
     Active Substance: COBIMETINIB
     Indication: PRODUCT USED FOR UNKNOWN INDICATION
     Route: 065

REACTIONS (6)
  - Chorioretinopathy [Unknown]
  - Dry skin [Unknown]
  - Hypoaesthesia [Unknown]
  - Dysphonia [Unknown]
  - Hyperthyroidism [Unknown]
  - Interstitial lung disease [Unknown]
